FAERS Safety Report 14022077 (Version 2)
Quarter: 2017Q4

REPORT INFORMATION
  Report Type: Report from Study
  Country: US (occurrence: US)
  Receive Date: 20170928
  Receipt Date: 20171006
  Transmission Date: 20180321
  Serious: Yes (Hospitalization)
  Sender: FDA-Public Use
  Company Number: US-ACTELION-A-US2017-159966

PATIENT
  Age: 42 Year
  Sex: Female

DRUGS (8)
  1. METOPROLOL. [Concomitant]
     Active Substance: METOPROLOL
     Dosage: 12.5 MG, UNK
     Route: 048
  2. ALDACTONE [Concomitant]
     Active Substance: SPIRONOLACTONE
     Dosage: 25 MG, BID
     Route: 048
  3. DIGOXIN. [Concomitant]
     Active Substance: DIGOXIN
     Dosage: 250 MCG, QD
     Route: 048
  4. REVATIO [Concomitant]
     Active Substance: SILDENAFIL CITRATE
     Dosage: 40 MG, TID
     Route: 048
  5. COUMADIN [Concomitant]
     Active Substance: WARFARIN SODIUM
     Dosage: 7 MG, MON,WED, FRI, 10 MG, TUE, THUR, SAT, SUN
  6. OXYGEN. [Concomitant]
     Active Substance: OXYGEN
  7. TRACLEER [Suspect]
     Active Substance: BOSENTAN
     Indication: PULMONARY HYPERTENSION
     Dosage: 125 MG, BID
     Route: 048
  8. LASIX [Concomitant]
     Active Substance: FUROSEMIDE
     Dosage: 60 MG, TID
     Route: 048

REACTIONS (10)
  - Oedema [Unknown]
  - Disease progression [Not Recovered/Not Resolved]
  - Oxygen saturation decreased [Not Recovered/Not Resolved]
  - Pneumonia [Unknown]
  - Respiratory failure [Not Recovered/Not Resolved]
  - Dysuria [Unknown]
  - Blood potassium decreased [Unknown]
  - Pulmonary hypertension [Not Recovered/Not Resolved]
  - Pulmonary oedema [Unknown]
  - Dyspnoea [Not Recovered/Not Resolved]
